FAERS Safety Report 7244155-2 (Version None)
Quarter: 2011Q1

REPORT INFORMATION
  Report Type: 
  Country: None (occurrence: None)
  Receive Date: 20110125
  Receipt Date: 20110117
  Transmission Date: 20110831
  Serious: Yes (Other)
  Sender: FDA-Public Use
  Company Number: US-ROCHE-754059

PATIENT
  Weight: 3.2 kg

DRUGS (3)
  1. CEFTRIAXONE SODIUM [Suspect]
     Route: 064
  2. AZITHROMYCIN [Concomitant]
  3. OSELTAMIVIR [Suspect]
     Dosage: FRM: GASTRIC TUBE: FOR 5 DAYS
     Route: 064

REACTIONS (2)
  - CARDIAC DISORDER [None]
  - HEART BLOCK CONGENITAL [None]
